FAERS Safety Report 25453313 (Version 1)
Quarter: 2025Q2

REPORT INFORMATION
  Report Type: Report from Study
  Country: US (occurrence: US)
  Receive Date: 20250618
  Receipt Date: 20250618
  Transmission Date: 20250717
  Serious: Yes (Hospitalization, Other)
  Sender: ABBVIE
  Company Number: US-ABBVIE-6283924

PATIENT
  Age: 24 Year
  Sex: Female

DRUGS (1)
  1. SKYRIZI [Suspect]
     Active Substance: RISANKIZUMAB-RZAA
     Indication: Colitis ulcerative
     Route: 058
     Dates: start: 20250326, end: 20250606

REACTIONS (12)
  - Colitis ulcerative [Not Recovered/Not Resolved]
  - Haematochezia [Recovering/Resolving]
  - Clostridium test positive [Unknown]
  - Colitis [Not Recovered/Not Resolved]
  - Tachycardia [Recovering/Resolving]
  - Cytomegalovirus infection [Not Recovered/Not Resolved]
  - Abdominal pain [Recovering/Resolving]
  - Pulmonary embolism [Recovering/Resolving]
  - Dyspnoea [Recovering/Resolving]
  - Inflammation [Unknown]
  - Bedridden [Unknown]
  - Malaise [Unknown]

NARRATIVE: CASE EVENT DATE: 20250510
